FAERS Safety Report 13017021 (Version 1)
Quarter: 2016Q4

REPORT INFORMATION
  Report Type: Spontaneous
  Country: NL (occurrence: NL)
  Receive Date: 20161212
  Receipt Date: 20161212
  Transmission Date: 20170207
  Serious: Yes (Death, Other)
  Sender: FDA-Public Use
  Company Number: NL-AUROBINDO-AUR-APL-2016-15135

PATIENT
  Age: 74 Year
  Sex: Male

DRUGS (3)
  1. PREDNISONE. [Suspect]
     Active Substance: PREDNISONE
     Indication: PRODUCT USED FOR UNKNOWN INDICATION
     Dosage: 5 MG, DAILY
     Route: 065
     Dates: start: 2000
  2. ABATACEPT [Suspect]
     Active Substance: ABATACEPT
     Indication: PRODUCT USED FOR UNKNOWN INDICATION
     Dosage: UNK
     Route: 065
     Dates: start: 201408
  3. MOXIFLOXACIN. [Suspect]
     Active Substance: MOXIFLOXACIN
     Indication: PRODUCT USED FOR UNKNOWN INDICATION
     Dosage: 400 MG, DAILY
     Route: 065

REACTIONS (17)
  - Q fever [Unknown]
  - Back pain [Unknown]
  - Abdominal pain [Unknown]
  - Syncope [Unknown]
  - Confusional state [Unknown]
  - Electrocardiogram QT prolonged [Unknown]
  - Renal failure [Unknown]
  - Hypertrophic cardiomyopathy [Fatal]
  - Pneumonia [Unknown]
  - Cardiac failure [Unknown]
  - Respiratory failure [Unknown]
  - Sepsis [Unknown]
  - Delirium [Unknown]
  - Malaise [Unknown]
  - Weight decreased [Unknown]
  - Impaired gastric emptying [Unknown]
  - Dyspnoea [Unknown]
